FAERS Safety Report 6999467-4 (Version None)
Quarter: 2010Q3

REPORT INFORMATION
  Report Type: 
  Country: None (occurrence: None)
  Receive Date: 20100920
  Receipt Date: 20100412
  Transmission Date: 20110219
  Serious: Yes (Other)
  Sender: FDA-Public Use
  Company Number: US-ASTRAZENECA-2009UW15552

PATIENT
  Age: 12664 Day
  Sex: Male

DRUGS (4)
  1. SEROQUEL [Suspect]
     Indication: AFFECTIVE DISORDER
     Dosage: 100MG-400MG DAILY
     Route: 048
     Dates: start: 19990319
  2. LITHIUM CARBONATE [Concomitant]
     Indication: BIPOLAR DISORDER
     Dosage: 600MG-1200MG DAILY
     Dates: start: 19990319
  3. ZYPREXA [Concomitant]
     Dates: start: 20070829
  4. DEPAKOTE [Concomitant]
     Route: 048
     Dates: start: 19990319

REACTIONS (1)
  - DIABETES MELLITUS [None]
